FAERS Safety Report 26188400 (Version 1)
Quarter: 2025Q4

REPORT INFORMATION
  Report Type: Spontaneous
  Country: US (occurrence: US)
  Receive Date: 20251222
  Receipt Date: 20251222
  Transmission Date: 20260117
  Serious: Yes (Other)
  Sender: NOVO NORDISK
  Company Number: US-NOVOPROD-1576571

PATIENT
  Age: 66 Year
  Sex: Female

DRUGS (1)
  1. OZEMPIC [Suspect]
     Active Substance: SEMAGLUTIDE
     Indication: Type 2 diabetes mellitus
     Dosage: 0.25 MG, QW
     Dates: start: 20251007, end: 20251104

REACTIONS (6)
  - Neuropathy peripheral [Not Recovered/Not Resolved]
  - Pelvic floor dysfunction [Unknown]
  - Blood cholesterol increased [Unknown]
  - Hunger [Unknown]
  - Diarrhoea [Unknown]
  - Abdominal distension [Unknown]
